FAERS Safety Report 18120528 (Version 1)
Quarter: 2020Q3

REPORT INFORMATION
  Report Type: Spontaneous
  Country: US (occurrence: US)
  Receive Date: 20200806
  Receipt Date: 20200806
  Transmission Date: 20201103
  Serious: No
  Sender: FDA-Public Use
  Company Number: US-BAUSCH-BL-2020-021029

PATIENT
  Sex: Female

DRUGS (3)
  1. TRULANCE [Suspect]
     Active Substance: PLECANATIDE
     Route: 048
     Dates: start: 2020, end: 2020
  2. TRULANCE [Suspect]
     Active Substance: PLECANATIDE
     Dosage: ONE TO THREE TABLETS UP TO SIX TABLETS PER DAY
     Route: 048
     Dates: start: 2020
  3. TRULANCE [Suspect]
     Active Substance: PLECANATIDE
     Indication: CONSTIPATION
     Route: 048
     Dates: start: 202001, end: 2020

REACTIONS (7)
  - Disease recurrence [Unknown]
  - Diarrhoea [Recovered/Resolved]
  - Constipation [Unknown]
  - Liver disorder [Unknown]
  - Abdominal distension [Unknown]
  - Overdose [Unknown]
  - Prescribed underdose [Unknown]

NARRATIVE: CASE EVENT DATE: 2020
